FAERS Safety Report 9571031 (Version 3)
Quarter: 2014Q2

REPORT INFORMATION
  Report Type: Report from Study
  Country: GB (occurrence: GB)
  Receive Date: 20131001
  Receipt Date: 20140404
  Transmission Date: 20141212
  Serious: Yes (Death, Hospitalization, Other)
  Sender: FDA-Public Use
  Company Number: GB-ROCHE-1283423

PATIENT
  Age: 73 Year
  Sex: Male

DRUGS (4)
  1. RANIBIZUMAB [Suspect]
     Indication: PRODUCT USED FOR UNKNOWN INDICATION
     Route: 050
     Dates: start: 20101124
  2. RANIBIZUMAB [Suspect]
     Route: 050
     Dates: start: 20120314
  3. RANIBIZUMAB [Suspect]
     Route: 050
     Dates: start: 20130102
  4. RANIBIZUMAB [Suspect]
     Route: 050
     Dates: start: 20130831

REACTIONS (4)
  - Metastatic neoplasm [Fatal]
  - Neuroendocrine tumour [Fatal]
  - Aspiration [Fatal]
  - Bronchial carcinoma [Not Recovered/Not Resolved]
